FAERS Safety Report 6380850-5 (Version None)
Quarter: 2009Q3

REPORT INFORMATION
  Report Type: 
  Country: None (occurrence: None)
  Receive Date: 20090929
  Receipt Date: 20090922
  Transmission Date: 20100115
  Serious: Yes (Hospitalization)
  Sender: FDA-Public Use
  Company Number: A0808472A

PATIENT
  Age: 15 Year
  Sex: Female

DRUGS (8)
  1. LAMICTAL [Suspect]
     Indication: EPILEPSY
     Dosage: 300MG TWICE PER DAY
     Route: 048
     Dates: start: 19910101
  2. OTHER MEDICATIONS [Concomitant]
  3. LYRICA [Concomitant]
  4. PHENOBARBITAL [Concomitant]
  5. KEPPRA [Concomitant]
  6. DILANTIN [Concomitant]
  7. TORADOL [Concomitant]
  8. KLONOPIN [Concomitant]

REACTIONS (3)
  - BACK PAIN [None]
  - CERVICAL VERTEBRAL FRACTURE [None]
  - CONVULSION [None]
